FAERS Safety Report 25378835 (Version 1)
Quarter: 2025Q2

REPORT INFORMATION
  Report Type: Spontaneous
  Country: GB (occurrence: GB)
  Receive Date: 20250530
  Receipt Date: 20250530
  Transmission Date: 20250716
  Serious: Yes (Other)
  Sender: PFIZER
  Company Number: None

PATIENT
  Age: 60 Year
  Sex: Female
  Weight: 69 kg

DRUGS (6)
  1. SULFASALAZINE [Suspect]
     Active Substance: SULFASALAZINE
     Dosage: 500 MG, 2X/DAY
     Route: 048
     Dates: start: 20240401, end: 20240403
  2. ESTRADIOL\NORETHINDRONE ACETATE [Concomitant]
     Active Substance: ESTRADIOL\NORETHINDRONE ACETATE
     Indication: Hormone replacement therapy
     Dates: start: 20180828
  3. BISOPROLOL [Concomitant]
     Active Substance: BISOPROLOL
     Indication: Abdominal pain
     Dates: start: 20190311
  4. LEVOTHYROXINE [Concomitant]
     Active Substance: LEVOTHYROXINE
     Indication: Hypothyroidism
     Dates: start: 20190308
  5. ESOMEPRAZOLE [Concomitant]
     Active Substance: ESOMEPRAZOLE
     Indication: Abdominal pain
     Dates: start: 20220802
  6. LORATADINE [Concomitant]
     Active Substance: LORATADINE
     Indication: Seasonal allergy
     Dates: start: 20141119

REACTIONS (3)
  - Ocular hyperaemia [Unknown]
  - Headache [Unknown]
  - Loss of personal independence in daily activities [Unknown]

NARRATIVE: CASE EVENT DATE: 20240403
